FAERS Safety Report 4369182-4 (Version None)
Quarter: 2004Q2

REPORT INFORMATION
  Report Type: 
  Country: None (occurrence: None)
  Receive Date: 20040527
  Receipt Date: 20040507
  Transmission Date: 20050107
  Serious: Yes (Other)
  Sender: FDA-Public Use
  Company Number: USA040567166

PATIENT
  Sex: 0

DRUGS (2)
  1. STRATTERA [Suspect]
     Dosage: 320 MG DAY
  2. THEOPHYLLINE [Concomitant]

REACTIONS (2)
  - ENERGY INCREASED [None]
  - HEAT STROKE [None]
